FAERS Safety Report 14281944 (Version 1)
Quarter: 2017Q4

REPORT INFORMATION
  Report Type: Report from Study
  Country: CA (occurrence: CA)
  Receive Date: 20171213
  Receipt Date: 20171213
  Transmission Date: 20180321
  Serious: Yes (Hospitalization, Other)
  Sender: FDA-Public Use
  Company Number: CA-JNJFOC-20170626743

PATIENT
  Age: 54 Year
  Sex: Male

DRUGS (4)
  1. STELARA [Suspect]
     Active Substance: USTEKINUMAB
     Indication: CROHN^S DISEASE
     Route: 042
     Dates: start: 20170523
  2. STELARA [Suspect]
     Active Substance: USTEKINUMAB
     Indication: CROHN^S DISEASE
     Route: 042
  3. STELARA [Suspect]
     Active Substance: USTEKINUMAB
     Indication: CROHN^S DISEASE
     Route: 042
  4. STELARA [Suspect]
     Active Substance: USTEKINUMAB
     Indication: CROHN^S DISEASE
     Route: 042
     Dates: start: 2017

REACTIONS (10)
  - Hypophagia [None]
  - Haematochezia [Unknown]
  - Cerebral haemorrhage [Not Recovered/Not Resolved]
  - Vitiligo [Not Recovered/Not Resolved]
  - Headache [None]
  - Diarrhoea [Unknown]
  - Cerebral haemorrhage [None]
  - Abdominal pain [Unknown]
  - Abdominal distension [Unknown]
  - Loss of consciousness [None]

NARRATIVE: CASE EVENT DATE: 2017
